FAERS Safety Report 16472920 (Version 1)
Quarter: 2019Q2

REPORT INFORMATION
  Report Type: Spontaneous
  Country: GB (occurrence: GB)
  Receive Date: 20190625
  Receipt Date: 20190625
  Transmission Date: 20190711
  Serious: Yes (Other)
  Sender: FDA-Public Use
  Company Number: GB-AMGEN-GBRSP2019098872

PATIENT

DRUGS (1)
  1. XGEVA [Suspect]
     Active Substance: DENOSUMAB
     Indication: BREAST CANCER
     Dosage: UNK
     Route: 065

REACTIONS (7)
  - Renal impairment [Unknown]
  - Diarrhoea [Unknown]
  - Hypocalcaemia [Unknown]
  - Tooth disorder [Unknown]
  - Dental operation [Unknown]
  - Impaired healing [Unknown]
  - Hypercalcaemia [Unknown]
